FAERS Safety Report 7368070-9 (Version None)
Quarter: 2011Q1

REPORT INFORMATION
  Report Type: 
  Country: None (occurrence: None)
  Receive Date: 20110323
  Receipt Date: 20110314
  Transmission Date: 20110831
  Serious: Yes (Hospitalization)
  Sender: FDA-Public Use
  Company Number: US-BIOGENIDEC-2011BI009620

PATIENT
  Age: 85 Year
  Sex: Male

DRUGS (3)
  1. AVONEX [Suspect]
     Route: 030
     Dates: start: 20030801
  2. AVONEX [Suspect]
     Indication: MULTIPLE SCLEROSIS
     Route: 030
     Dates: start: 19990801, end: 20030801
  3. AVONEX [Suspect]
     Route: 030
     Dates: start: 20090201

REACTIONS (4)
  - DEHYDRATION [None]
  - VOMITING [None]
  - PNEUMONIA [None]
  - ASPIRATION [None]
